FAERS Safety Report 7198540-8 (Version None)
Quarter: 2010Q4

REPORT INFORMATION
  Report Type: 
  Country: None (occurrence: None)
  Receive Date: 20101214
  Receipt Date: 20101104
  Transmission Date: 20110411
  Serious: Yes (Other)
  Sender: FDA-Public Use
  Company Number: S04-TUR-02785-01

PATIENT
  Age: 38 Year
  Sex: Male

DRUGS (2)
  1. CIPRALEX (ESCITALOPRAM) (TABLETS) [Suspect]
     Indication: DEPRESSION
     Dosage: 10 MG (10 MG,1 IN 1 D),ORAL
     Route: 048
     Dates: start: 20040201, end: 20040505
  2. SLEEPING PILLS (SLEEPING PILLS) (SLEEPING PILLS) [Concomitant]

REACTIONS (3)
  - BLINDNESS UNILATERAL [None]
  - CATARACT SUBCAPSULAR [None]
  - CORNEAL OPACITY [None]
